FAERS Safety Report 6926986-9 (Version None)
Quarter: 2010Q3

REPORT INFORMATION
  Report Type: 
  Country: None (occurrence: None)
  Receive Date: 20100816
  Receipt Date: 20100715
  Transmission Date: 20110219
  Serious: No
  Sender: FDA-Public Use
  Company Number: US-ABBOTT-10P-163-0657658-00

PATIENT
  Sex: Female
  Weight: 90.8 kg

DRUGS (1)
  1. SIMCOR [Suspect]
     Indication: HIGH DENSITY LIPOPROTEIN DECREASED
     Dosage: 750/20MG AT NIGHT
     Dates: start: 20100714

REACTIONS (2)
  - MUSCLE SPASMS [None]
  - PARAESTHESIA [None]
